FAERS Safety Report 21807943 (Version 1)
Quarter: 2023Q1

REPORT INFORMATION
  Report Type: Report from Study
  Country: US (occurrence: US)
  Receive Date: 20230103
  Receipt Date: 20230103
  Transmission Date: 20230418
  Serious: Yes (Other)
  Sender: FDA-Public Use
  Company Number: US-ABBVIE-4254654

PATIENT
  Sex: Female

DRUGS (1)
  1. HUMIRA [Suspect]
     Active Substance: ADALIMUMAB
     Indication: Ankylosing spondylitis
     Dosage: CITRATE FREE
     Route: 058
     Dates: start: 20220826

REACTIONS (10)
  - Spinal anaesthesia [Recovering/Resolving]
  - Ankylosing spondylitis [Not Recovered/Not Resolved]
  - Arthropathy [Not Recovered/Not Resolved]
  - Diabetes mellitus [Unknown]
  - Nutritional condition abnormal [Recovered/Resolved]
  - Energy increased [Unknown]
  - Neuropathy peripheral [Unknown]
  - Blood calcium increased [Recovered/Resolved]
  - Intervertebral disc degeneration [Unknown]
  - Body height decreased [Unknown]
